FAERS Safety Report 7815699-7 (Version None)
Quarter: 2011Q4

REPORT INFORMATION
  Report Type: 
  Country: None (occurrence: None)
  Receive Date: 20111014
  Receipt Date: 20111010
  Transmission Date: 20120403
  Serious: Yes (Other)
  Sender: FDA-Public Use
  Company Number: IT-CELGENEUS-083-21880-11091821

PATIENT
  Sex: Male

DRUGS (4)
  1. REVLIMID [Suspect]
     Indication: MULTIPLE MYELOMA
     Dosage: 10 MILLIGRAM
     Route: 048
     Dates: start: 20080610
  2. REVLIMID [Suspect]
     Dosage: 10 MILLIGRAM
     Route: 048
     Dates: start: 20081212
  3. MELPHALAN HYDROCHLORIDE [Concomitant]
     Indication: MULTIPLE MYELOMA
     Dosage: .18 MILLIGRAM
     Route: 065
     Dates: start: 20080610
  4. PREDNISONE [Concomitant]
     Indication: MULTIPLE MYELOMA
     Dosage: 2 MILLIGRAM
     Route: 065
     Dates: start: 20080610

REACTIONS (1)
  - PROSTATE CANCER [None]
